FAERS Safety Report 11480269 (Version 1)
Quarter: 2015Q3

REPORT INFORMATION
  Report Type: Spontaneous
  Country: US (occurrence: US)
  Receive Date: 20150909
  Receipt Date: 20150909
  Transmission Date: 20151125
  Serious: Yes (Congenital Anomaly, Other)
  Sender: FDA-Public Use
  Company Number: US-GLAXOSMITHKLINE-US2015GSK123168

PATIENT
  Sex: Male

DRUGS (1)
  1. ZOFRAN [Suspect]
     Active Substance: ONDANSETRON HYDROCHLORIDE
     Route: 064

REACTIONS (5)
  - Anomaly of external ear congenital [Unknown]
  - Congenital anomaly [Unknown]
  - Congenital oral malformation [Unknown]
  - Foetal exposure during pregnancy [Unknown]
  - Headache [Unknown]
